FAERS Safety Report 5866062-X (Version None)
Quarter: 2008Q3

REPORT INFORMATION
  Report Type: 
  Country: None (occurrence: None)
  Receive Date: 20080829
  Receipt Date: 20080827
  Transmission Date: 20090109
  Serious: No
  Sender: FDA-Public Use
  Company Number: US-BOEHRINGER INGELHEIM GMBH, GERMANY-2008-BP-13496BP

PATIENT
  Age: 28 Year
  Sex: Male

DRUGS (3)
  1. COMBIVENT [Suspect]
     Indication: ASTHMA
     Dates: start: 20060101, end: 20080825
  2. ASTHMA INHALERS [Concomitant]
     Indication: ASTHMA
     Route: 055
  3. LACTASE [Concomitant]
     Indication: LACTOSE INTOLERANCE

REACTIONS (3)
  - ABDOMINAL DISCOMFORT [None]
  - DIARRHOEA [None]
  - FLATULENCE [None]
